FAERS Safety Report 23172115 (Version 2)
Quarter: 2023Q4

REPORT INFORMATION
  Report Type: Spontaneous
  Country: IT (occurrence: IT)
  Receive Date: 20231110
  Receipt Date: 20231120
  Transmission Date: 20240110
  Serious: Yes (Hospitalization)
  Sender: FDA-Public Use
  Company Number: None

PATIENT
  Age: 13 Year
  Sex: Male
  Weight: 44 kg

DRUGS (1)
  1. ABILIFY [Suspect]
     Active Substance: ARIPIPRAZOLE
     Indication: Product used for unknown indication
     Dosage: SINGLE DOSE INTAKE OF 5 ML, SO 5 MG
     Route: 048
     Dates: start: 20231009

REACTIONS (5)
  - Sopor [Recovering/Resolving]
  - Sluggishness [Recovering/Resolving]
  - Cognitive disorder [Recovering/Resolving]
  - Somnolence [Recovering/Resolving]
  - Dose calculation error [Recovering/Resolving]

NARRATIVE: CASE EVENT DATE: 20231009
